FAERS Safety Report 10248324 (Version 1)
Quarter: 2014Q2

REPORT INFORMATION
  Report Type: Spontaneous
  Country: US (occurrence: US)
  Receive Date: 20140620
  Receipt Date: 20140620
  Transmission Date: 20141212
  Serious: Yes (Death)
  Sender: FDA-Public Use
  Company Number: US-009507513-1406USA008792

PATIENT
  Age: 82 Year
  Sex: Male

DRUGS (1)
  1. VYTORIN [Suspect]
     Dosage: 10/20MG / ONCE DAILY
     Route: 048

REACTIONS (1)
  - Death [Fatal]
